FAERS Safety Report 9989257 (Version 1)
Quarter: 2013Q4

REPORT INFORMATION
  Report Type: Spontaneous
  Country: US (occurrence: None)
  Receive Date: 20131024
  Receipt Date: 20131024
  Transmission Date: 20140711
  Serious: Yes (Hospitalization)
  Sender: FDA-Public Use
  Company Number: 1747990

PATIENT
  Age: 76 Year
  Sex: Male
  Weight: 92.08 kg

DRUGS (9)
  1. 1% LIDOCAINE HCL INJECTION, USP (LIDOCAINE HYDROCHLORIDE) [Suspect]
     Indication: JOINT INJECTION
     Dosage: ONE TIME
     Dates: start: 20130905, end: 20130905
  2. TRIAMCINOLONE DIACETATE [Suspect]
     Indication: JOINT INJECTION
     Dosage: ONE TIME
     Route: 014
     Dates: start: 20130905, end: 20130905
  3. BETADINE [Concomitant]
  4. ALCOHOL [Concomitant]
  5. AVODART [Concomitant]
  6. LORTAB [Concomitant]
  7. CELEXA [Concomitant]
  8. OMEPRAZOLE [Concomitant]
  9. LISINOPRIL [Concomitant]

REACTIONS (2)
  - Arthritis bacterial [None]
  - Staphylococcal infection [None]
